FAERS Safety Report 15683253 (Version 1)
Quarter: 2018Q4

REPORT INFORMATION
  Report Type: Spontaneous
  Country: ES (occurrence: ES)
  Receive Date: 20181204
  Receipt Date: 20181204
  Transmission Date: 20190205
  Serious: Yes (Other)
  Sender: FDA-Public Use
  Company Number: ES-SUN PHARMACEUTICAL INDUSTRIES LTD-2018RR-192362

PATIENT
  Age: 63 Year
  Sex: Male

DRUGS (8)
  1. ZOLEDRONIC ACID [Suspect]
     Active Substance: ZOLEDRONIC ACID
     Dosage: 75 MILLIGRAM/SQ. METER, DAILY, 3 WEEKS ON TREATMENT FOLLOWED BY 1 WEEK OFF TREATMENT
     Route: 065
     Dates: start: 201512, end: 201702
  2. CYCLOPHOSPHAMIDE. [Suspect]
     Active Substance: CYCLOPHOSPHAMIDE
     Indication: PRODUCT USED FOR UNKNOWN INDICATION
     Dosage: 750 MILLIGRAM/SQ. METER, EVERY 21 DAYS
     Route: 065
     Dates: start: 201502
  3. DACARBAZINE. [Suspect]
     Active Substance: DACARBAZINE
     Indication: PRODUCT USED FOR UNKNOWN INDICATION
     Dosage: 600 MILLIGRAM/SQ. METER, ON DAY 1 AND 2, EVERY 21 DAYS
     Route: 065
  4. TEMOZOLOMIDE. [Suspect]
     Active Substance: TEMOZOLOMIDE
     Indication: PARAGANGLION NEOPLASM
     Dosage: UNK
     Route: 065
     Dates: start: 201512, end: 201702
  5. ZOLEDRONIC ACID [Suspect]
     Active Substance: ZOLEDRONIC ACID
     Indication: PRODUCT USED FOR UNKNOWN INDICATION
     Dosage: 4 MILLIGRAM, EVERY 28 DAYS
     Route: 065
     Dates: start: 201502
  6. SOMATULINE AUTOGEL [Suspect]
     Active Substance: LANREOTIDE ACETATE
     Indication: PRODUCT USED FOR UNKNOWN INDICATION
     Dosage: 120 MILLIGRAM, EVERY 14 DAYS
     Route: 065
     Dates: start: 201502
  7. SOMATULINE AUTOGEL [Suspect]
     Active Substance: LANREOTIDE ACETATE
     Dosage: 120 MILLIGRAM,WEEKS ON TREATMENT FOLLOWED BY 1 WEEK OFF TREATMENT
     Route: 065
     Dates: start: 201512, end: 201702
  8. VINCRISTINE [Suspect]
     Active Substance: VINCRISTINE
     Indication: PRODUCT USED FOR UNKNOWN INDICATION
     Dosage: 1.4 MILLIGRAM/SQ. METER, EVERY 21 DAYS
     Route: 065
     Dates: start: 201502

REACTIONS (4)
  - Drug effect incomplete [Unknown]
  - Lymphopenia [Unknown]
  - Condition aggravated [Unknown]
  - Therapeutic response unexpected [Unknown]
